FAERS Safety Report 9023595 (Version 2)
Quarter: 2013Q1

REPORT INFORMATION
  Report Type: Spontaneous
  Country: DK (occurrence: FR)
  Receive Date: 20130121
  Receipt Date: 20130130
  Transmission Date: 20140127
  Serious: Yes (Hospitalization)
  Sender: FDA-Public Use
  Company Number: FR-FRI-1000041769

PATIENT
  Age: 56 None
  Sex: Female

DRUGS (11)
  1. ESCITALOPRAM [Suspect]
     Dosage: 20 MG
     Route: 048
     Dates: start: 20121006, end: 20121006
  2. VALPROATE SODIUM [Suspect]
     Dosage: 600 MG
     Route: 048
     Dates: start: 20121006, end: 20121006
  3. VALDOXAN [Suspect]
     Dosage: 25 MG
     Route: 048
     Dates: start: 20121006, end: 20121006
  4. RHINUREFLEX [Suspect]
     Dosage: 1 DF
     Route: 048
     Dates: start: 20121016, end: 20121017
  5. CLARADOL [Suspect]
     Dosage: 2 DF
     Route: 046
     Dates: start: 20121018, end: 20121018
  6. SPIFEN [Suspect]
     Dosage: 1200 MG
     Route: 048
     Dates: start: 20121002
  7. MEGAMAG [Suspect]
     Dosage: 135 MG
     Route: 048
     Dates: start: 20121002, end: 20121011
  8. MOTILIUM [Suspect]
     Route: 048
     Dates: start: 20121008, end: 20121008
  9. IDEOS [Concomitant]
     Route: 048
     Dates: start: 20120915
  10. TEMESTA [Concomitant]
     Dosage: 0.75 MG
     Route: 048
  11. XYZALL [Concomitant]
     Dosage: 5 MG
     Route: 048
     Dates: end: 20121025

REACTIONS (4)
  - Rash maculo-papular [Recovering/Resolving]
  - Pruritus [Recovering/Resolving]
  - Eosinophilia [Not Recovered/Not Resolved]
  - Enanthema [Recovering/Resolving]
